FAERS Safety Report 7043417-1 (Version None)
Quarter: 2010Q4

REPORT INFORMATION
  Report Type: 
  Country: None (occurrence: None)
  Receive Date: 20101013
  Receipt Date: 20100929
  Transmission Date: 20110411
  Serious: Yes (Other)
  Sender: FDA-Public Use
  Company Number: PHHY2010VE65581

PATIENT
  Sex: Female

DRUGS (2)
  1. EXFORGE [Suspect]
     Indication: HYPERTENSION
     Dosage: UNK
     Dates: start: 20070101
  2. EXFORGE [Suspect]
     Dosage: 5/16 MG
     Dates: start: 20080101

REACTIONS (1)
  - ACUTE HAEMORRHAGIC CONJUNCTIVITIS [None]
